FAERS Safety Report 13329326 (Version 4)
Quarter: 2019Q4

REPORT INFORMATION
  Report Type: Report from Study
  Country: CO (occurrence: CO)
  Receive Date: 20170313
  Receipt Date: 20191217
  Transmission Date: 20200122
  Serious: Yes (Hospitalization, Other)
  Sender: FDA-Public Use
  Company Number: CO-JNJFOC-20161115579

PATIENT
  Age: 61 Year
  Sex: Male
  Weight: 60 kg

DRUGS (6)
  1. ACICLOVIR [Concomitant]
     Active Substance: ACYCLOVIR
     Indication: PRODUCT USED FOR UNKNOWN INDICATION
     Route: 065
  2. IMBRUVICA [Suspect]
     Active Substance: IBRUTINIB
     Route: 048
  3. IMBRUVICA [Suspect]
     Active Substance: IBRUTINIB
     Route: 048
  4. VORICONAZOL [Concomitant]
     Active Substance: VORICONAZOLE
     Indication: PRODUCT USED FOR UNKNOWN INDICATION
     Route: 065
  5. IMBRUVICA [Suspect]
     Active Substance: IBRUTINIB
     Indication: CHRONIC LYMPHOCYTIC LEUKAEMIA
     Route: 048
     Dates: start: 20151126
  6. PREDNISOLONE. [Concomitant]
     Active Substance: PREDNISOLONE
     Indication: PRODUCT USED FOR UNKNOWN INDICATION
     Route: 065

REACTIONS (17)
  - Cholelithiasis [Unknown]
  - Fatigue [Recovering/Resolving]
  - Pancreatitis [Unknown]
  - Rash pustular [Recovering/Resolving]
  - Sinusitis [Recovering/Resolving]
  - Depressed mood [Recovering/Resolving]
  - Asthenia [Unknown]
  - Headache [Not Recovered/Not Resolved]
  - Abscess [Unknown]
  - Dysphonia [Not Recovered/Not Resolved]
  - Haemoglobin decreased [Unknown]
  - Dizziness [Not Recovered/Not Resolved]
  - Urticaria [Unknown]
  - Epistaxis [Unknown]
  - Pruritus [Unknown]
  - Biopsy [Unknown]
  - Influenza [Unknown]

NARRATIVE: CASE EVENT DATE: 201601
